FAERS Safety Report 9042553 (Version 1)
Quarter: 2013Q1

REPORT INFORMATION
  Report Type: Report from Study
  Country: US (occurrence: US)
  Receive Date: 20130129
  Receipt Date: 20130129
  Transmission Date: 20140127
  Serious: No
  Sender: FDA-Public Use
  Company Number: US-ABBOTT-12P-163-0906829-00

PATIENT
  Sex: Male

DRUGS (1)
  1. HUMIRA 40 MG/0.8 ML PEN [Suspect]
     Indication: CROHN^S DISEASE
     Route: 058
     Dates: start: 200902

REACTIONS (7)
  - Vision blurred [Unknown]
  - Vomiting [Unknown]
  - Migraine [Unknown]
  - Memory impairment [Unknown]
  - Mood altered [Unknown]
  - Fall [Unknown]
  - Head injury [Unknown]
